FAERS Safety Report 23987405 (Version 1)
Quarter: 2024Q2

REPORT INFORMATION
  Report Type: Spontaneous
  Country: JP (occurrence: JP)
  Receive Date: 20240618
  Receipt Date: 20240618
  Transmission Date: 20240716
  Serious: No
  Sender: FDA-Public Use
  Company Number: JP-WT-2024-060059

PATIENT
  Age: 68 Year
  Sex: Male

DRUGS (1)
  1. DUTASTERIDE [Suspect]
     Active Substance: DUTASTERIDE
     Route: 065

REACTIONS (1)
  - Asthenia [Unknown]
